FAERS Safety Report 6579226-7 (Version None)
Quarter: 2010Q1

REPORT INFORMATION
  Report Type: 
  Country: None (occurrence: None)
  Receive Date: 20100212
  Receipt Date: 20100204
  Transmission Date: 20100710
  Serious: Yes (Death, Life-Threatening)
  Sender: FDA-Public Use
  Company Number: JP-BAYER-200812898BYL

PATIENT
  Age: 57 Year
  Sex: Male
  Weight: 64 kg

DRUGS (23)
  1. NEXAVAR [Suspect]
     Indication: RENAL CELL CARCINOMA
     Dosage: TOTAL DAILY DOSE: 400 MG  UNIT DOSE: 200 MG
     Route: 048
     Dates: start: 20071019
  2. NEXAVAR [Suspect]
     Dosage: TOTAL DAILY DOSE: 800 MG  UNIT DOSE: 200 MG
     Route: 048
     Dates: start: 20080516, end: 20080707
  3. NEXAVAR [Suspect]
     Dosage: TOTAL DAILY DOSE: 800 MG  UNIT DOSE: 200 MG
     Route: 048
     Dates: start: 20080905, end: 20081031
  4. OXYCONTIN [Concomitant]
     Indication: CANCER PAIN
     Route: 048
     Dates: start: 20071011
  5. OXYCONTIN [Concomitant]
     Route: 048
     Dates: start: 20080527, end: 20081026
  6. HYPEN [Concomitant]
     Route: 048
     Dates: start: 20080527, end: 20081101
  7. TOLEDOMIN [Concomitant]
     Route: 048
     Dates: start: 20080527, end: 20081101
  8. MYSLEE [Concomitant]
     Route: 048
     Dates: start: 20080527, end: 20081101
  9. ROHYPNOL [Concomitant]
     Route: 048
     Dates: start: 20080527, end: 20081101
  10. OXINORM [Concomitant]
     Indication: METASTASES TO BONE
     Route: 048
     Dates: start: 20071011
  11. OXINORM [Concomitant]
     Route: 048
     Dates: start: 20080527, end: 20081101
  12. SUMIFERON [Concomitant]
     Route: 058
     Dates: start: 20080527, end: 20080729
  13. INTERFERON ALFA [Concomitant]
     Dosage: TOTAL DAILY DOSE: 3 MIU
     Route: 065
     Dates: start: 20071017, end: 20080905
  14. ZOMETA [Concomitant]
     Indication: METASTASES TO BONE
     Route: 065
     Dates: start: 20071011, end: 20080901
  15. IL-6 [Concomitant]
     Dosage: TOTAL DAILY DOSE: 700 KIU
     Route: 065
     Dates: start: 20080707
  16. MAPROTILINE HYDROCHLORIDE [Concomitant]
     Route: 042
     Dates: start: 20081001, end: 20081001
  17. MAPROTILINE HYDROCHLORIDE [Concomitant]
     Route: 042
     Dates: start: 20081008, end: 20081009
  18. MAPROTILINE HYDROCHLORIDE [Concomitant]
     Route: 042
     Dates: start: 20080930, end: 20080930
  19. PRIMPERAN TAB [Concomitant]
     Indication: METASTASES TO BONE
     Route: 048
     Dates: start: 20071011
  20. NOVAMIN [Concomitant]
     Indication: METASTASES TO BONE
     Route: 048
     Dates: start: 20071011
  21. SENNOSIDE [Concomitant]
     Indication: METASTASES TO BONE
     Route: 048
     Dates: start: 20071011
  22. MAGLAX [Concomitant]
     Indication: METASTASES TO BONE
     Route: 048
     Dates: start: 20071011
  23. TOLEDOMIN [Concomitant]
     Indication: METASTASES TO BONE
     Route: 048
     Dates: start: 20071011

REACTIONS (3)
  - INTERSTITIAL LUNG DISEASE [None]
  - RESPIRATORY FAILURE [None]
  - TUMOUR HAEMORRHAGE [None]
